FAERS Safety Report 18382413 (Version 1)
Quarter: 2020Q4

REPORT INFORMATION
  Report Type: Spontaneous
  Country: AU (occurrence: AU)
  Receive Date: 20201014
  Receipt Date: 20201014
  Transmission Date: 20210114
  Serious: Yes (Hospitalization, Other)
  Sender: FDA-Public Use
  Company Number: AU-JNJFOC-20201013302

PATIENT
  Age: 39 Year
  Sex: Male

DRUGS (7)
  1. PSORALEN [Concomitant]
     Active Substance: PSORALEN
     Indication: PSORIASIS
  2. METHOTREXATE. [Concomitant]
     Active Substance: METHOTREXATE
     Indication: PSORIASIS
     Route: 065
     Dates: start: 200304
  3. METHOTREXATE. [Concomitant]
     Active Substance: METHOTREXATE
     Indication: PSORIATIC ARTHROPATHY
  4. ACITRETIN. [Concomitant]
     Active Substance: ACITRETIN
     Indication: PSORIATIC ARTHROPATHY
  5. REMICADE [Suspect]
     Active Substance: INFLIXIMAB
     Indication: PSORIASIS
     Route: 042
     Dates: start: 200304
  6. SULFASALAZINE. [Concomitant]
     Active Substance: SULFASALAZINE
     Indication: PSORIASIS
     Dates: end: 2003
  7. PREDNISONE. [Concomitant]
     Active Substance: PREDNISONE
     Indication: PSORIASIS
     Dates: end: 2003

REACTIONS (1)
  - Typhoid fever [Recovered/Resolved]

NARRATIVE: CASE EVENT DATE: 2003
